FAERS Safety Report 5010293-8 (Version None)
Quarter: 2006Q2

REPORT INFORMATION
  Report Type: 
  Country: None (occurrence: None)
  Receive Date: 20060404
  Receipt Date: 20051205
  Transmission Date: 20061013
  Serious: No
  Sender: FDA-Public Use
  Company Number: US200512000752

PATIENT
  Sex: Female

DRUGS (4)
  1. CYMBALTA [Suspect]
     Indication: NERVE INJURY
     Dosage: 30 MG
     Dates: start: 20051202, end: 20051202
  2. TOPROL-XL [Concomitant]
  3. TAPAZOLE [Concomitant]
  4. VASOTEC [Concomitant]

REACTIONS (4)
  - BLOOD GLUCOSE INCREASED [None]
  - HYPERHIDROSIS [None]
  - NAUSEA [None]
  - VISION BLURRED [None]
